FAERS Safety Report 7734391-0 (Version None)
Quarter: 2011Q3

REPORT INFORMATION
  Report Type: 
  Country: None (occurrence: None)
  Receive Date: 20110907
  Receipt Date: 20110829
  Transmission Date: 20111222
  Serious: Yes (Hospitalization, Other)
  Sender: FDA-Public Use
  Company Number: JP-JNJFOC-20110706885

PATIENT
  Sex: Female
  Weight: 43 kg

DRUGS (12)
  1. METHOTREXATE [Suspect]
     Indication: RHEUMATOID ARTHRITIS
     Route: 048
     Dates: start: 20070419, end: 20090402
  2. ALENDRONATE SODIUM [Concomitant]
     Indication: RHEUMATOID ARTHRITIS
     Route: 048
     Dates: start: 20071227
  3. PREDNISOLONE [Suspect]
     Indication: RHEUMATOID ARTHRITIS
     Route: 048
     Dates: start: 20031009
  4. REMICADE [Suspect]
     Route: 042
     Dates: start: 20081127
  5. REMICADE [Suspect]
     Route: 042
     Dates: start: 20081127
  6. FOLIC ACID [Concomitant]
     Indication: RHEUMATOID ARTHRITIS
     Route: 048
     Dates: start: 20070419, end: 20090402
  7. REMICADE [Suspect]
     Route: 042
     Dates: start: 20090205
  8. REMICADE [Suspect]
     Indication: RHEUMATOID ARTHRITIS
     Route: 042
     Dates: start: 20081002
  9. REMICADE [Suspect]
     Route: 042
     Dates: start: 20080731
  10. REMICADE [Suspect]
     Route: 042
     Dates: start: 20080619
  11. REMICADE [Suspect]
     Route: 042
     Dates: start: 20080703
  12. LANSOPRAZOLE [Concomitant]
     Indication: RHEUMATOID ARTHRITIS
     Route: 048
     Dates: start: 20071129

REACTIONS (2)
  - HEPATITIS ACUTE [None]
  - DISSEMINATED TUBERCULOSIS [None]
